FAERS Safety Report 9010183 (Version 2)
Quarter: 2013Q1

REPORT INFORMATION
  Report Type: Spontaneous
  Country: US (occurrence: US)
  Receive Date: 20130110
  Receipt Date: 20130221
  Transmission Date: 20140127
  Serious: Yes (Hospitalization, Other)
  Sender: FDA-Public Use
  Company Number: PHEH2013US000774

PATIENT
  Sex: Female

DRUGS (2)
  1. DIOVAN HCT [Suspect]
     Dosage: (320 MG OF VALS AND 25 MG HCT)
  2. IBUPROFEN [Concomitant]

REACTIONS (5)
  - Cardiac failure congestive [Unknown]
  - Blood pressure decreased [Unknown]
  - Neoplasm malignant [Unknown]
  - Arthritis [Unknown]
  - Carpal tunnel syndrome [Unknown]
